FAERS Safety Report 4402395-1 (Version None)
Quarter: 2004Q3

REPORT INFORMATION
  Report Type: 
  Country: None (occurrence: None)
  Receive Date: 20040720
  Receipt Date: 20040708
  Transmission Date: 20050211
  Serious: Yes (Death, Other)
  Sender: FDA-Public Use
  Company Number: PHBS2004JP09259

PATIENT
  Age: 60 Year
  Sex: Male

DRUGS (6)
  1. DIOVAN [Suspect]
     Dosage: 40 MG/DAY
     Route: 048
  2. ALLOPURINOL [Suspect]
     Route: 048
  3. FLUITRAN [Concomitant]
     Route: 048
  4. PERDIPINE [Concomitant]
     Route: 048
  5. ANTIPRURITICS AND ANAESTHETICS LOCALLY [Suspect]
  6. ANTIINFLAMMATORY/ANTIRHEUMATIC PRODUCTS [Suspect]

REACTIONS (2)
  - DEATH [None]
  - PANCYTOPENIA [None]
